FAERS Safety Report 7435855-X (Version None)
Quarter: 2011Q2

REPORT INFORMATION
  Report Type: 
  Country: None (occurrence: None)
  Receive Date: 20110425
  Receipt Date: 20110420
  Transmission Date: 20111010
  Serious: Yes (Hospitalization)
  Sender: FDA-Public Use
  Company Number: JP-ABBOTT-11P-087-0720365-00

PATIENT
  Sex: Male

DRUGS (9)
  1. VEGETAMIN B [Suspect]
     Indication: DELIRIUM
     Dosage: 1 DOSAGE FORM DAILY
     Route: 048
     Dates: start: 20070401, end: 20100129
  2. TEGRETOL [Concomitant]
     Indication: DELIRIUM
     Dosage: 400 MG DAILY
     Route: 048
     Dates: start: 20070401
  3. ROHYPNOL [Concomitant]
     Indication: DELIRIUM
     Dosage: 2 MG DAILY
     Route: 048
     Dates: start: 20070401, end: 20100126
  4. TETRAMIDE [Concomitant]
     Indication: DELIRIUM
     Dosage: 30 MG DAILY
     Route: 048
     Dates: start: 20070401
  5. AMLODIN [Concomitant]
     Indication: HYPERTENSION
     Dosage: 5 MG DAILY
     Route: 048
     Dates: start: 20070401
  6. NEULEPTIL [Suspect]
     Indication: DELIRIUM
     Dosage: 10 MG DAILY
     Route: 048
     Dates: start: 20070401, end: 20100129
  7. RIVOTRIL [Concomitant]
     Indication: DELIRIUM
     Dosage: 2 MG DAILY
     Route: 048
     Dates: start: 20070401
  8. BIPERIDEN [Suspect]
     Indication: PARKINSONISM
     Dosage: 1 MG DAILY
     Route: 048
     Dates: start: 20070401, end: 20100129
  9. GASTER D [Suspect]
     Indication: GASTRITIS
     Dosage: 40 MG DAILY
     Route: 048
     Dates: start: 20070401, end: 20100129

REACTIONS (3)
  - DELIRIUM [None]
  - SLEEP-RELATED EATING DISORDER [None]
  - RESTLESS LEGS SYNDROME [None]
